FAERS Safety Report 13737646 (Version 1)
Quarter: 2017Q3

REPORT INFORMATION
  Report Type: Report from Study
  Country: US (occurrence: US)
  Receive Date: 20170710
  Receipt Date: 20170710
  Transmission Date: 20171127
  Serious: No
  Sender: FDA-Public Use
  Company Number: US-SAOL THERAPEUTICS-2016SAO00237

PATIENT
  Age: 49 Year
  Sex: Female

DRUGS (6)
  1. COMPOUNDED BACLOFEN [Suspect]
     Active Substance: BACLOFEN
     Dosage: 80.10 ?G, \DAY
     Route: 037
     Dates: start: 20160107
  2. DILAUDID [Suspect]
     Active Substance: HYDROMORPHONE HYDROCHLORIDE
     Dosage: 1.239 MG, \DAY
     Route: 037
     Dates: start: 20160107
  3. BUPIVACAINE. [Suspect]
     Active Substance: BUPIVACAINE
     Dosage: 24.788 MG, \DAY
     Route: 037
     Dates: start: 20160107
  4. DILAUDID [Suspect]
     Active Substance: HYDROMORPHONE HYDROCHLORIDE
     Dosage: 0.801 MG, \DAY
     Route: 037
     Dates: start: 20160107
  5. COMPOUNDED BACLOFEN [Suspect]
     Active Substance: BACLOFEN
     Dosage: 123.94 ?G \DAY
     Route: 037
     Dates: start: 20160107
  6. BUPIVACAINE. [Suspect]
     Active Substance: BUPIVACAINE
     Dosage: 16.021 MG, \DAY
     Route: 037
     Dates: start: 20160107

REACTIONS (1)
  - Limb discomfort [Recovered/Resolved]

NARRATIVE: CASE EVENT DATE: 20160407
